FAERS Safety Report 4595888-8 (Version None)
Quarter: 2005Q1

REPORT INFORMATION
  Report Type: 
  Country: None (occurrence: None)
  Receive Date: 20050224
  Receipt Date: 20050224
  Transmission Date: 20050727
  Serious: Yes (Hospitalization)
  Sender: FDA-Public Use
  Company Number: None

PATIENT
  Sex: Male

DRUGS (10)
  1. AMIODARONE [Suspect]
     Dosage: 400 MG DAILY ORAL
     Route: 048
  2. METOPROLOL [Suspect]
     Dosage: 25 MG  BID ORAL
     Route: 048
  3. TERAZOSIN HCL [Concomitant]
  4. SIMVASTATIN [Concomitant]
  5. POTASSIUM CHLORIDE [Concomitant]
  6. LISINOPRIL [Concomitant]
  7. OMEPRAZOLE [Concomitant]
  8. CLOPIDOGREL BISULFATE [Concomitant]
  9. ASPIRIN [Concomitant]
  10. FUROSEMIDE [Concomitant]

REACTIONS (2)
  - BRADYCARDIA [None]
  - CHEST DISCOMFORT [None]
